FAERS Safety Report 18617524 (Version 1)
Quarter: 2020Q4

REPORT INFORMATION
  Report Type: Spontaneous
  Country: US (occurrence: US)
  Receive Date: 20201215
  Receipt Date: 20201215
  Transmission Date: 20210114
  Serious: Yes (Other)
  Sender: FDA-Public Use
  Company Number: US-AMGEN-USASP2020201813

PATIENT

DRUGS (3)
  1. LETROZOLE. [Concomitant]
     Active Substance: LETROZOLE
  2. IBRANCE [Concomitant]
     Active Substance: PALBOCICLIB
  3. XGEVA [Suspect]
     Active Substance: DENOSUMAB
     Indication: METASTASES TO BONE
     Dosage: UNK, QMO
     Route: 065

REACTIONS (4)
  - Injection site warmth [Recovered/Resolved]
  - Carpal tunnel syndrome [Unknown]
  - Lymphoedema [Unknown]
  - Neuropathy peripheral [Unknown]
